FAERS Safety Report 9535904 (Version 1)
Quarter: 2013Q3

REPORT INFORMATION
  Report Type: Spontaneous
  Country: US (occurrence: None)
  Receive Date: 20130917
  Receipt Date: 20130917
  Transmission Date: 20140515
  Serious: No
  Sender: FDA-Public Use
  Company Number: None

PATIENT
  Age: 46 None
  Sex: Male
  Weight: 73.6 kg

DRUGS (1)
  1. ARIPIPRAZOLE [Suspect]
     Indication: DEPRESSION
     Dosage: 5 MG AM PO
     Route: 048
     Dates: start: 20130821, end: 20130904

REACTIONS (1)
  - Therapeutic response decreased [None]
